FAERS Safety Report 24431958 (Version 1)
Quarter: 2024Q4

REPORT INFORMATION
  Report Type: Spontaneous
  Country: US (occurrence: US)
  Receive Date: 20241014
  Receipt Date: 20241014
  Transmission Date: 20250115
  Serious: No
  Sender: AMNEAL
  Company Number: US-AMNEAL PHARMACEUTICALS-2023-AMRX-04248

PATIENT
  Sex: Male

DRUGS (1)
  1. AZELASTINE HYDROCHLORIDE [Suspect]
     Active Substance: AZELASTINE HYDROCHLORIDE
     Indication: Product used for unknown indication
     Dosage: TWO SPRAYS IN EACH NOSTRIL TWO TIMES DAILY AT MORNING AND EVENING
     Route: 045
     Dates: start: 20231105

REACTIONS (3)
  - Nasal congestion [Not Recovered/Not Resolved]
  - Drug effect less than expected [Unknown]
  - Product substitution issue [Unknown]
